FAERS Safety Report 6914987-6 (Version None)
Quarter: 2010Q3

REPORT INFORMATION
  Report Type: 
  Country: None (occurrence: None)
  Receive Date: 20100809
  Receipt Date: 20100729
  Transmission Date: 20110219
  Serious: Yes (Other)
  Sender: FDA-Public Use
  Company Number: CHPA2010US12364

PATIENT
  Age: 74 Year
  Sex: Female
  Weight: 59.864 kg

DRUGS (2)
  1. PREVACID 24 HR [Suspect]
     Indication: BARRETT'S OESOPHAGUS
     Dosage: 30 MG, BID
     Route: 048
     Dates: start: 20100601
  2. PREVACID 24 HR [Suspect]
     Indication: HIATUS HERNIA

REACTIONS (5)
  - ASTHENIA [None]
  - DRUG INEFFECTIVE FOR UNAPPROVED INDICATION [None]
  - HAEMORRHAGE [None]
  - INTENTIONAL DRUG MISUSE [None]
  - OVERDOSE [None]
